FAERS Safety Report 13102934 (Version 1)
Quarter: 2017Q1

REPORT INFORMATION
  Report Type: Spontaneous
  Country: RO (occurrence: RO)
  Receive Date: 20170110
  Receipt Date: 20170110
  Transmission Date: 20170428
  Serious: Yes (Other)
  Sender: FDA-Public Use
  Company Number: RO-BAYER-2017-002625

PATIENT
  Age: 70 Year
  Sex: Female

DRUGS (2)
  1. ASPIRIN CARDIO 100 MG [Suspect]
     Active Substance: ASPIRIN
     Dosage: UNK
  2. APIXABAN [Interacting]
     Active Substance: APIXABAN
     Dosage: UNK

REACTIONS (3)
  - Drug administration error [Not Recovered/Not Resolved]
  - Cerebrovascular accident [Not Recovered/Not Resolved]
  - Labelled drug-drug interaction medication error [Not Recovered/Not Resolved]
